FAERS Safety Report 5897133-X (Version None)
Quarter: 2008Q3

REPORT INFORMATION
  Report Type: 
  Country: None (occurrence: None)
  Receive Date: 20080924
  Receipt Date: 20080508
  Transmission Date: 20090109
  Serious: Yes (Other)
  Sender: FDA-Public Use
  Company Number: US-ASTRAZENECA-2008UW09624

PATIENT

DRUGS (4)
  1. SEROQUEL [Suspect]
     Route: 048
  2. ATIVAN [Concomitant]
  3. REMERON [Concomitant]
  4. TEGRETOL [Concomitant]

REACTIONS (2)
  - BLOOD CHOLESTEROL INCREASED [None]
  - BLOOD TRIGLYCERIDES INCREASED [None]
